FAERS Safety Report 19929441 (Version 1)
Quarter: 2021Q4

REPORT INFORMATION
  Report Type: Spontaneous
  Country: US (occurrence: US)
  Receive Date: 20211007
  Receipt Date: 20211007
  Transmission Date: 20220303
  Serious: No
  Sender: FDA-Public Use
  Company Number: US-PFIZER INC-202100929855

PATIENT
  Age: 74 Year
  Sex: Female

DRUGS (1)
  1. BOSULIF [Suspect]
     Active Substance: BOSUTINIB MONOHYDRATE
     Indication: Chronic myeloid leukaemia
     Dosage: 400 MG

REACTIONS (5)
  - Malaise [Unknown]
  - Swelling [Unknown]
  - Product dose omission issue [Unknown]
  - Pain in extremity [Unknown]
  - Tooth injury [Unknown]

NARRATIVE: CASE EVENT DATE: 20210822
